FAERS Safety Report 10964145 (Version 2)
Quarter: 2015Q2

REPORT INFORMATION
  Report Type: Spontaneous
  Country: US (occurrence: US)
  Receive Date: 20150329
  Receipt Date: 20150524
  Transmission Date: 20150821
  Serious: No
  Sender: FDA-Public Use
  Company Number: US-JNJFOC-20130412865

PATIENT
  Age: 58 Year
  Sex: Female
  Weight: 86.18 kg

DRUGS (3)
  1. ABSTRAL [Suspect]
     Active Substance: FENTANYL CITRATE
     Indication: PRODUCT USED FOR UNKNOWN INDICATION
     Dosage: FIVE 100 MG PER HOUR
     Route: 062
  2. DURAGESIC [Suspect]
     Active Substance: FENTANYL
     Indication: HIP ARTHROPLASTY
     Dosage: 100 UG/HR + 50 UG/HR
     Route: 062
     Dates: start: 201012, end: 2012
  3. XANAX [Concomitant]
     Active Substance: ALPRAZOLAM
     Route: 048
     Dates: start: 2008

REACTIONS (3)
  - Menopause [Not Recovered/Not Resolved]
  - Therapeutic response decreased [Unknown]
  - Product quality issue [Unknown]

NARRATIVE: CASE EVENT DATE: 2012
